FAERS Safety Report 7414750-6 (Version None)
Quarter: 2011Q2

REPORT INFORMATION
  Report Type: 
  Country: None (occurrence: None)
  Receive Date: 20110406
  Receipt Date: 20110324
  Transmission Date: 20111010
  Serious: Yes (Hospitalization)
  Sender: FDA-Public Use
  Company Number: PDNS20110002

PATIENT
  Age: 59 Year
  Sex: Female
  Weight: 80.7 kg

DRUGS (17)
  1. UNKNOWN STUDY DRUG [Suspect]
     Indication: RHEUMATOID ARTHRITIS
     Dosage: 10 MG, 2 IN 1 D, PER ORAL
     Route: 048
     Dates: start: 20101105, end: 20110215
  2. VENTOLIN [Concomitant]
  3. LORAZEPAM [Concomitant]
  4. POTASSIUM [Concomitant]
  5. CICLESONIDE [Concomitant]
  6. ADVAIR DISKUS 100/50 [Concomitant]
  7. METFORMIN [Concomitant]
  8. OXYCODONE HCL [Concomitant]
  9. SIMVASTATIN [Concomitant]
  10. IBUPROFEN [Concomitant]
  11. PROCHLORPERAZINE TAB [Concomitant]
  12. METHOTREXATE [Suspect]
     Indication: RHEUMATOID ARTHRITIS
     Dosage: 20 MG, 1 IN 1 WK, PER ORAL
     Route: 048
     Dates: start: 19850101
  13. FOLIC ACID [Concomitant]
  14. CYMBLATA [Concomitant]
  15. PREDNISONE [Suspect]
     Indication: RHEUMATOID ARTHRITIS
     Dosage: 10 MG, 1 IN 1 D, PER ORAL
     Route: 048
     Dates: start: 20100719
  16. LANTUS [Concomitant]
  17. AMLODIPINE [Concomitant]

REACTIONS (7)
  - RENAL FAILURE ACUTE [None]
  - ATELECTASIS [None]
  - RESPIRATORY FAILURE [None]
  - ASTHENIA [None]
  - LUNG INFILTRATION [None]
  - ELECTROCARDIOGRAM QT PROLONGED [None]
  - PNEUMOCYSTIS JIROVECI PNEUMONIA [None]
